APPROVED DRUG PRODUCT: MYDCOMBI
Active Ingredient: PHENYLEPHRINE HYDROCHLORIDE; TROPICAMIDE
Strength: 2.5%;1%
Dosage Form/Route: SPRAY, METERED;OPHTHALMIC
Application: N215352 | Product #001
Applicant: EYENOVIA INC
Approved: May 5, 2023 | RLD: Yes | RS: No | Type: DISCN

PATENTS:
Patent 11398306 | Expires: Jul 15, 2031
Patent 10839960 | Expires: Jul 15, 2031
Patent 11839487 | Expires: Jul 15, 2031

EXCLUSIVITY:
Code: NP | Date: May 5, 2026